FAERS Safety Report 7538178-3 (Version None)
Quarter: 2011Q2

REPORT INFORMATION
  Report Type: 
  Country: None (occurrence: None)
  Receive Date: 20110609
  Receipt Date: 20110608
  Transmission Date: 20111010
  Serious: Yes (Other)
  Sender: FDA-Public Use
  Company Number: US-ALLERGAN-1105788US

PATIENT
  Age: 55 Year
  Sex: Female
  Weight: 54.422 kg

DRUGS (1)
  1. BOTOX COSMETIC [Suspect]
     Indication: SKIN WRINKLING
     Dosage: UNK
     Route: 030
     Dates: start: 20091101, end: 20091101

REACTIONS (6)
  - ASTHENIA [None]
  - FATIGUE [None]
  - FLUID RETENTION [None]
  - ARTHRALGIA [None]
  - JOINT STIFFNESS [None]
  - BURNING SENSATION [None]
